FAERS Safety Report 18271818 (Version 1)
Quarter: 2020Q3

REPORT INFORMATION
  Report Type: Spontaneous
  Country: US (occurrence: US)
  Receive Date: 20200915
  Receipt Date: 20200915
  Transmission Date: 20201103
  Serious: No
  Sender: FDA-Public Use
  Company Number: None

PATIENT
  Age: 66 Year
  Sex: Female
  Weight: 100.8 kg

DRUGS (10)
  1. XELJANZ XR [Suspect]
     Active Substance: TOFACITINIB CITRATE
     Indication: RHEUMATOID ARTHRITIS
     Dosage: ?          QUANTITY:1 TABLET(S);?
     Route: 048
     Dates: end: 20200828
  2. TRMADOL [Concomitant]
     Active Substance: TRAMADOL
  3. NEXIUM [Concomitant]
     Active Substance: ESOMEPRAZOLE MAGNESIUM
  4. CALCIUM PLUS D [Concomitant]
     Active Substance: CALCIUM\VITAMIN D
  5. SYNTHROID [Concomitant]
     Active Substance: LEVOTHYROXINE SODIUM
  6. TYLENOL [Concomitant]
     Active Substance: ACETAMINOPHEN
  7. PEPCID [Concomitant]
     Active Substance: FAMOTIDINE
  8. HYDROEYE [Concomitant]
     Active Substance: MINERALS\OMEGA-3 FATTY ACIDS\VITAMINS
  9. LOSARTIN [Concomitant]
     Active Substance: LOSARTAN
  10. HYDROCHLOROTHIAZIDE. [Concomitant]
     Active Substance: HYDROCHLOROTHIAZIDE

REACTIONS (1)
  - Herpes zoster [None]

NARRATIVE: CASE EVENT DATE: 20200827
